FAERS Safety Report 7545520-6 (Version None)
Quarter: 2011Q2

REPORT INFORMATION
  Report Type: 
  Country: None (occurrence: None)
  Receive Date: 20110614
  Receipt Date: 20110530
  Transmission Date: 20111010
  Serious: Yes (Hospitalization)
  Sender: FDA-Public Use
  Company Number: FR-CELGENEUS-056-C5013-11031973

PATIENT
  Sex: Female
  Weight: 72 kg

DRUGS (11)
  1. LENALIDOMIDE [Suspect]
     Route: 048
     Dates: end: 20110117
  2. DEXAMETHASONE [Suspect]
     Dosage: 20 MILLIGRAM
     Route: 065
     Dates: end: 20110111
  3. LASIX [Concomitant]
     Dosage: 40 MILLIGRAM
     Route: 048
     Dates: start: 20090904
  4. CALCIUM CARBONATE [Concomitant]
     Dosage: 500 MILLIGRAM
     Route: 048
     Dates: start: 20090213
  5. LENALIDOMIDE [Suspect]
     Indication: MULTIPLE MYELOMA
     Dosage: 10 MILLIGRAM
     Route: 048
     Dates: start: 20081025
  6. ACETAMINOPHEN AND CODEINE PHOSPHATE [Concomitant]
     Indication: BONE PAIN
     Route: 048
     Dates: start: 20080912
  7. ATENOLOL [Concomitant]
     Indication: ATRIAL FIBRILLATION
     Dosage: 50 MILLIGRAM
     Route: 048
     Dates: start: 20090320
  8. PREVISCAN [Concomitant]
     Indication: PROPHYLAXIS
     Dosage: 5 TO 10 MG
     Route: 048
     Dates: start: 20090119
  9. ATORVASTATIN [Concomitant]
     Dosage: 10 MILLIGRAM
     Route: 048
     Dates: start: 20070801
  10. LEXOMIL [Concomitant]
     Indication: INSOMNIA
     Dosage: 3 MILLIGRAM
     Route: 048
     Dates: start: 20090110
  11. DEXAMETHASONE [Suspect]
     Indication: MULTIPLE MYELOMA
     Dosage: 20 MILLIGRAM
     Route: 048
     Dates: start: 20081025

REACTIONS (1)
  - SKIN ULCER [None]
